FAERS Safety Report 9101604 (Version 1)
Quarter: 2013Q1

REPORT INFORMATION
  Report Type: Spontaneous
  Country: US (occurrence: US)
  Receive Date: 20130218
  Receipt Date: 20130218
  Transmission Date: 20140127
  Serious: Yes (Other)
  Sender: FDA-Public Use
  Company Number: US-BAYER-2013-019380

PATIENT
  Sex: Female

DRUGS (1)
  1. ALKA-SELTZER PLUS COLD SPARKLING ORIGINAL [Suspect]
     Indication: NASOPHARYNGITIS
     Dosage: 2 DF, Q4HR
     Route: 048
     Dates: start: 20130211, end: 20130211

REACTIONS (1)
  - Blood pressure increased [Not Recovered/Not Resolved]
